FAERS Safety Report 7115872-X (Version None)
Quarter: 2010Q4

REPORT INFORMATION
  Report Type: 
  Country: None (occurrence: None)
  Receive Date: 20101122
  Receipt Date: 20101108
  Transmission Date: 20110411
  Serious: Yes (Hospitalization, Other)
  Sender: FDA-Public Use
  Company Number: US-ELI_LILLY_AND_COMPANY-US201007004611

PATIENT
  Sex: Female

DRUGS (19)
  1. FORTEO [Suspect]
     Indication: OSTEOPOROSIS
     Dosage: 20 UG, DAILY (1/D)
     Route: 065
  2. AMBIEN [Concomitant]
     Dosage: UNK, UNKNOWN
     Route: 065
  3. CALCIUM [Concomitant]
     Dosage: UNK, UNKNOWN
     Route: 065
  4. VITAMIN D [Concomitant]
     Dosage: UNK, UNKNOWN
     Route: 065
  5. CYMBALTA [Concomitant]
     Dosage: 60 MG, DAILY (1/D)
     Route: 065
  6. NORCO [Concomitant]
  7. MULTI-VITAMIN [Concomitant]
  8. IRON [Concomitant]
  9. COLACE [Concomitant]
  10. METOPROLOL TARTRATE [Concomitant]
     Dosage: 25 MG, DAILY (1/D)
  11. OS-CAL [Concomitant]
     Dosage: UNK, 2/D
  12. VITAMIN D3 [Concomitant]
     Dosage: UNK, 3/D
  13. PROTONIX [Concomitant]
     Dosage: UNK, 2/D
  14. ERGOCALCIFEROL [Concomitant]
     Dosage: 50000 D/F, UNK
  15. SENNA [Concomitant]
  16. OXYCONTIN [Concomitant]
  17. LOVENOX [Concomitant]
  18. TYLENOL (CAPLET) [Concomitant]
  19. ZYPREXA [Concomitant]

REACTIONS (7)
  - ARTHRALGIA [None]
  - FALL [None]
  - LOWER LIMB FRACTURE [None]
  - MOBILITY DECREASED [None]
  - OSTEOLYSIS [None]
  - OSTEOPENIA [None]
  - PERIPROSTHETIC FRACTURE [None]
